FAERS Safety Report 24075213 (Version 2)
Quarter: 2024Q4

REPORT INFORMATION
  Report Type: Report from Study
  Country: DE (occurrence: DE)
  Receive Date: 20240710
  Receipt Date: 20241005
  Transmission Date: 20250115
  Serious: Yes (Death, Hospitalization, Other)
  Sender: ABBVIE
  Company Number: DE-ABBVIE-5833119

PATIENT
  Age: 85 Year
  Sex: Female

DRUGS (23)
  1. CARBIDOPA\LEVODOPA [Suspect]
     Active Substance: CARBIDOPA\LEVODOPA
     Indication: Parkinson^s disease
     Route: 050
     Dates: start: 20181012, end: 20221104
  2. CARBIDOPA\LEVODOPA [Suspect]
     Active Substance: CARBIDOPA\LEVODOPA
  3. BENSERAZIDE HYDROCHLORIDE\LEVODOPA [Concomitant]
     Active Substance: BENSERAZIDE HYDROCHLORIDE\LEVODOPA
     Indication: Product used for unknown indication
     Dosage: 100/25MG?RETARD
  4. CITALOPRAM HYDROBROMIDE [Concomitant]
     Active Substance: CITALOPRAM HYDROBROMIDE
     Indication: Product used for unknown indication
     Dosage: FORM STRENGTH: 20 MG
  5. METAMIZOLE SODIUM [Concomitant]
     Active Substance: METAMIZOLE SODIUM
     Indication: Product used for unknown indication
     Dosage: TIME INTERVAL: 0.33333333 DAYS
  6. ALBUTEROL SULFATE [Concomitant]
     Active Substance: ALBUTEROL SULFATE
     Indication: Product used for unknown indication
  7. NEUPRO [Concomitant]
     Active Substance: ROTIGOTINE
     Indication: Product used for unknown indication
     Dosage: 6MG/24H
  8. NEUPRO [Concomitant]
     Active Substance: ROTIGOTINE
     Indication: Product used for unknown indication
     Dosage: 2MG/24H
  9. NEUPRO [Concomitant]
     Active Substance: ROTIGOTINE
     Indication: Product used for unknown indication
  10. MELPERONE HYDROCHLORIDE [Concomitant]
     Active Substance: MELPERONE HYDROCHLORIDE
     Indication: Product used for unknown indication
     Dosage: FORM STRENGTH: 25 MG
  11. PREGABALIN [Concomitant]
     Active Substance: PREGABALIN
     Indication: Product used for unknown indication
     Dosage: FORM STRENGTH: 25 MG?FREQUENCY TEXT: 2X DAILY, 1-2-0-0
  12. PREGABALIN [Concomitant]
     Active Substance: PREGABALIN
     Indication: Product used for unknown indication
     Dosage: FORM STRENGTH: 50 MG
  13. LEVOTHYROXINE SODIUM [Concomitant]
     Active Substance: LEVOTHYROXINE SODIUM
     Indication: Product used for unknown indication
     Dosage: FORM STRENGTH: 75 MG
  14. BENSERAZIDE\LEVODOPA [Concomitant]
     Active Substance: BENSERAZIDE\LEVODOPA
     Indication: Product used for unknown indication
     Dosage: FORM STRENGTH: 25 MG
  15. FOLIC ACID [Concomitant]
     Active Substance: FOLIC ACID
     Indication: Product used for unknown indication
     Dosage: FORM STRENGTH: 5 MG
  16. QUETIAPINE [Concomitant]
     Active Substance: QUETIAPINE
     Indication: Product used for unknown indication
     Dosage: FORM STRENGTH: 25 MG
  17. SEROQUEL [Concomitant]
     Active Substance: QUETIAPINE FUMARATE
     Indication: Product used for unknown indication
  18. TAVOR (LORAZEPAM) [Concomitant]
     Active Substance: LORAZEPAM
     Indication: Product used for unknown indication
     Dosage: FORM STRENGTH: 2.5MG
  19. ZOLPIDEM 1 A PHARMA [Concomitant]
     Indication: Product used for unknown indication
     Dosage: FORM STRENGTH: 10MG?FREQUENCY TEXT: 1X DAILY IF REQUIRED
  20. MORPHINE [Concomitant]
     Active Substance: MORPHINE
     Indication: Product used for unknown indication
     Dosage: FORM STRENGTH: 10MG
  21. CARBIDOPA\LEVODOPA [Concomitant]
     Active Substance: CARBIDOPA\LEVODOPA
     Indication: Product used for unknown indication
     Dosage: 100/25MG?FREQUENCY TEXT: 4X DAILY, 1-0.5-1-0.5
  22. BENSERAZIDE HYDROCHLORIDE\LEVODOPA [Concomitant]
     Active Substance: BENSERAZIDE HYDROCHLORIDE\LEVODOPA
     Indication: Product used for unknown indication
     Dosage: FORM STRENGTH: 100 MG
  23. PRONTOSAN W [Concomitant]
     Indication: Product used for unknown indication

REACTIONS (26)
  - Death [Fatal]
  - Renal cyst [Unknown]
  - General physical health deterioration [Unknown]
  - Pyelocaliectasis [Unknown]
  - Cyst [Unknown]
  - Decreased appetite [Unknown]
  - Reactive gastropathy [Unknown]
  - Nephrolithiasis [Unknown]
  - Troponin increased [Unknown]
  - Asymptomatic bacteriuria [Unknown]
  - Abnormal loss of weight [Unknown]
  - Angina unstable [Unknown]
  - Overdose [Unknown]
  - Palliative care [Unknown]
  - Stoma site discharge [Unknown]
  - Renal function test abnormal [Unknown]
  - Gastric mucosa erythema [Unknown]
  - Nutritional condition abnormal [Unknown]
  - Dyspnoea [Unknown]
  - Acute kidney injury [Unknown]
  - Stoma site erythema [Unknown]
  - Gastritis erosive [Unknown]
  - Stoma site infection [Unknown]
  - Device issue [Unknown]
  - Gastritis [Unknown]
  - Kidney congestion [Unknown]

NARRATIVE: CASE EVENT DATE: 20230530
